FAERS Safety Report 8241582-1 (Version None)
Quarter: 2012Q1

REPORT INFORMATION
  Report Type: 
  Country: None (occurrence: None)
  Receive Date: 20120328
  Receipt Date: 20120326
  Transmission Date: 20120608
  Serious: Yes (Hospitalization, Other)
  Sender: FDA-Public Use
  Company Number: GB-PFIZER INC-2012059221

PATIENT
  Age: 71 Year
  Sex: Female

DRUGS (3)
  1. VARENICLINE TARTRATE [Suspect]
     Indication: SMOKING CESSATION THERAPY
     Dosage: INITIATION PACK
     Dates: start: 20120201
  2. ACETAMINOPHEN AND CODEINE PHOSPHATE [Concomitant]
     Dosage: UNK
  3. BRIMONIDINE [Concomitant]
     Dosage: UNK
     Route: 047

REACTIONS (2)
  - ABDOMINAL DISCOMFORT [None]
  - COLITIS [None]
